FAERS Safety Report 24343039 (Version 2)
Quarter: 2024Q4

REPORT INFORMATION
  Report Type: Spontaneous
  Country: RU (occurrence: RU)
  Receive Date: 20240920
  Receipt Date: 20241007
  Transmission Date: 20250114
  Serious: Yes (Other)
  Sender: DR REDDYS
  Company Number: RU-RZN-SPO/RUS/24/0013523

PATIENT
  Age: 72 Year
  Sex: Male
  Weight: 100 kg

DRUGS (12)
  1. CLOPIDOGREL [Suspect]
     Active Substance: CLOPIDOGREL BISULFATE
     Indication: Atrial fibrillation
  2. CLOPIDOGREL [Suspect]
     Active Substance: CLOPIDOGREL BISULFATE
     Indication: Antiplatelet therapy
  3. RIVAROXABAN [Suspect]
     Active Substance: RIVAROXABAN
     Indication: Atrial fibrillation
  4. RIVAROXABAN [Suspect]
     Active Substance: RIVAROXABAN
     Indication: Anticoagulant therapy
  5. SPIRONOLACTONE [Suspect]
     Active Substance: SPIRONOLACTONE
     Indication: Atrial fibrillation
  6. ASPIRIN [Suspect]
     Active Substance: ASPIRIN
     Indication: Atrial fibrillation
  7. METOPROLOL [Suspect]
     Active Substance: METOPROLOL
     Indication: Atrial fibrillation
  8. ATORVASTATIN [Suspect]
     Active Substance: ATORVASTATIN
     Indication: Atrial fibrillation
  9. SACUBITRIL\VALSARTAN [Suspect]
     Active Substance: SACUBITRIL\VALSARTAN
     Indication: Atrial fibrillation
  10. DAPAGLIFLOZIN [Suspect]
     Active Substance: DAPAGLIFLOZIN
     Indication: Atrial fibrillation
  11. EMOXYPINE HYDROCHLORIDE [Suspect]
     Active Substance: EMOXYPINE HYDROCHLORIDE
     Indication: Atrial fibrillation
     Dosage: FOR ONE MONTH
  12. BLOOD, BOVINE [Suspect]
     Active Substance: BLOOD, BOVINE
     Indication: Atrial fibrillation

REACTIONS (4)
  - Drug ineffective [Unknown]
  - Cerebral artery embolism [Unknown]
  - Pulmonary hypertension [Unknown]
  - Hemiparesis [Unknown]
